FAERS Safety Report 13927108 (Version 1)
Quarter: 2017Q3

REPORT INFORMATION
  Report Type: Spontaneous
  Country: US (occurrence: US)
  Receive Date: 20170831
  Receipt Date: 20170831
  Transmission Date: 20171127
  Serious: No
  Sender: FDA-Public Use
  Company Number: US-TOLMAR, INC.-2016US008400

PATIENT
  Age: 76 Year
  Sex: Male

DRUGS (18)
  1. FENOFIBRATE. [Concomitant]
     Active Substance: FENOFIBRATE
  2. FOLTANX RF [Concomitant]
  3. LYRICA [Concomitant]
     Active Substance: PREGABALIN
  4. FLOMAX [Concomitant]
     Active Substance: TAMSULOSIN HYDROCHLORIDE
  5. METOPROLOL. [Concomitant]
     Active Substance: METOPROLOL
  6. OXYBUTYNIN [Concomitant]
     Active Substance: OXYBUTYNIN
  7. LISINOPRIL. [Concomitant]
     Active Substance: LISINOPRIL
  8. PRIMIDONE. [Concomitant]
     Active Substance: PRIMIDONE
  9. TYLENOL ARTHRITIS PAIN [Concomitant]
     Active Substance: ACETAMINOPHEN
  10. ELIGARD [Suspect]
     Active Substance: LEUPROLIDE ACETATE
     Indication: PROSTATE CANCER
     Dosage: 45 MG, 6 MONTH DOSE
     Route: 058
     Dates: start: 20160829
  11. HUMALOG [Concomitant]
     Active Substance: INSULIN LISPRO
  12. ASPIRIN                            /00002701/ [Concomitant]
     Active Substance: ASPIRIN
  13. FLONASE [Concomitant]
     Active Substance: FLUTICASONE PROPIONATE
  14. METAXALONE. [Concomitant]
     Active Substance: METAXALONE
  15. SIMVASTATIN. [Concomitant]
     Active Substance: SIMVASTATIN
  16. VITAMIN D2 [Concomitant]
     Active Substance: ERGOCALCIFEROL
  17. NEXIUM [Concomitant]
     Active Substance: ESOMEPRAZOLE MAGNESIUM
  18. OXYCODONE [Concomitant]
     Active Substance: OXYCODONE

REACTIONS (1)
  - Drug administration error [Unknown]

NARRATIVE: CASE EVENT DATE: 20160829
